FAERS Safety Report 5822613-2 (Version None)
Quarter: 2008Q3

REPORT INFORMATION
  Report Type: 
  Country: None (occurrence: None)
  Receive Date: 20080723
  Receipt Date: 20080723
  Transmission Date: 20090109
  Serious: Yes (Other)
  Sender: FDA-Public Use
  Company Number: None

PATIENT
  Age: 29 Year
  Sex: Male

DRUGS (1)
  1. SENSORCAINE [Suspect]
     Dosage: 1.2ML ONCE SAB
     Dates: start: 20080722

REACTIONS (1)
  - ANAESTHETIC COMPLICATION [None]
